FAERS Safety Report 20940293 (Version 1)
Quarter: 2022Q2

REPORT INFORMATION
  Report Type: Other
  Country: US (occurrence: None)
  Receive Date: 20220609
  Receipt Date: 20220609
  Transmission Date: 20220721
  Serious: Yes (Hospitalization)
  Sender: FDA-Public Use
  Company Number: US-ROCHE-3112597

PATIENT
  Sex: Male
  Weight: 99.426 kg

DRUGS (13)
  1. RITUXAN [Suspect]
     Active Substance: RITUXIMAB
     Indication: Nephrotic syndrome
     Dosage: 375MG/M2 EVERY 4 WEEK 2 DOSES
     Route: 041
     Dates: start: 20180901
  2. RITUXAN [Suspect]
     Active Substance: RITUXIMAB
     Indication: Chronic kidney disease
  3. RITUXAN [Suspect]
     Active Substance: RITUXIMAB
     Indication: Proteinuria
  4. RITUXAN [Suspect]
     Active Substance: RITUXIMAB
     Indication: Glomerulonephritis membranous
  5. RITUXAN [Suspect]
     Active Substance: RITUXIMAB
     Indication: Glomerulonephritis proliferative
  6. VITAMIN D3 [Concomitant]
     Active Substance: CHOLECALCIFEROL
     Dosage: 1 TABLET ORALLY ONCE A DAY
  7. RAMIPRIL [Concomitant]
     Active Substance: RAMIPRIL
     Dosage: 2 CAPSULES ORALLY TWICE DAILY
  8. POTASSIUM CHLORIDE [Concomitant]
     Active Substance: POTASSIUM CHLORIDE
     Dosage: AS DIRECTED ORAL 2 TABS AM AND 1 TAB PM
  9. PREDNISONE [Concomitant]
     Active Substance: PREDNISONE
     Dosage: 1 TABLET ORALLY ONCE A DAY
  10. TORSEMIDE [Concomitant]
     Active Substance: TORSEMIDE
     Dosage: 1 TABLET ORALLY TWICE A DAY
  11. METOLAZONE [Concomitant]
     Active Substance: METOLAZONE
     Dosage: 1 TABLET ORALLY AS NEEDED
  12. ALLOPURINOL [Concomitant]
     Active Substance: ALLOPURINOL
  13. CARVEDILOL [Concomitant]
     Active Substance: CARVEDILOL

REACTIONS (4)
  - Influenza [Unknown]
  - Hypotension [Unknown]
  - Oedema [Unknown]
  - Off label use [Unknown]
